FAERS Safety Report 9288269 (Version 1)
Quarter: 2013Q2

REPORT INFORMATION
  Report Type: Spontaneous
  Country: BR (occurrence: BR)
  Receive Date: 20130514
  Receipt Date: 20130514
  Transmission Date: 20140414
  Serious: Yes (Other)
  Sender: FDA-Public Use
  Company Number: PHHY2013BR046838

PATIENT
  Sex: Male
  Weight: 62 kg

DRUGS (5)
  1. TEGRETOL CR [Suspect]
     Indication: HEADACHE
     Dosage: 1 DF (200 MG), DAILY
     Route: 048
     Dates: start: 2000
  2. TEGRETOL CR [Suspect]
     Indication: OFF LABEL USE
     Dosage: 2 DF (200 MG), DAILY
     Route: 048
  3. RIVOTRIL [Concomitant]
     Indication: TREMOR
     Dosage: 4 DF (2 MG), DAILY
     Route: 048
  4. FLUOXETINE [Concomitant]
     Indication: TREMOR
     Dosage: 2 DF, DAILY
     Route: 048
  5. DIAZEPAM [Concomitant]
     Indication: SLEEP DISORDER
     Dosage: 2 DF (10 MG), AT NIGHT
     Route: 048

REACTIONS (3)
  - Cerebral atrophy [Not Recovered/Not Resolved]
  - Weight decreased [Recovered/Resolved]
  - Headache [Not Recovered/Not Resolved]
